FAERS Safety Report 6846926-0 (Version None)
Quarter: 2010Q3

REPORT INFORMATION
  Report Type: 
  Country: None (occurrence: None)
  Receive Date: 20100715
  Receipt Date: 20071117
  Transmission Date: 20110219
  Serious: No
  Sender: FDA-Public Use
  Company Number: US-PFIZER INC-2007080511

PATIENT
  Sex: Female
  Weight: 58.2 kg

DRUGS (5)
  1. CHANTIX [Suspect]
     Indication: SMOKING CESSATION THERAPY
     Dates: start: 20070820, end: 20070920
  2. LISINOPRIL [Concomitant]
  3. EVISTA [Concomitant]
  4. VYTORIN [Concomitant]
     Dosage: 10/40
  5. CARDIZEM SR [Concomitant]
     Dosage: 240

REACTIONS (2)
  - PRURITUS [None]
  - RASH [None]
